FAERS Safety Report 8199285-8 (Version None)
Quarter: 2012Q1

REPORT INFORMATION
  Report Type: 
  Country: None (occurrence: None)
  Receive Date: 20120309
  Receipt Date: 20120223
  Transmission Date: 20120608
  Serious: Yes (Other)
  Sender: FDA-Public Use
  Company Number: CHPA2012US003857

PATIENT
  Age: 80 Year
  Sex: Male
  Weight: 81.633 kg

DRUGS (3)
  1. TARCEVA [Concomitant]
     Dosage: UNK, UNK
  2. MAALOX MAX ANTACID+ANTIGAS [Suspect]
     Indication: ABDOMINAL DISCOMFORT
     Dosage: UNK, UNK
     Route: 048
  3. MORPHINE [Concomitant]
     Dosage: UNK, UNK

REACTIONS (5)
  - PARKINSON'S DISEASE [None]
  - CONSTIPATION [None]
  - LUNG NEOPLASM MALIGNANT [None]
  - WEIGHT DECREASED [None]
  - DEMENTIA [None]
